FAERS Safety Report 19773730 (Version 1)
Quarter: 2021Q3

REPORT INFORMATION
  Report Type: Report from Study
  Country: US (occurrence: US)
  Receive Date: 20210901
  Receipt Date: 20210901
  Transmission Date: 20211014
  Serious: Yes (Other)
  Sender: FDA-Public Use
  Company Number: US-ASTRAZENECA-2021A669037

PATIENT
  Age: 24607 Day
  Sex: Female
  Weight: 64.4 kg

DRUGS (16)
  1. PROCHLORPERAZINE. [Concomitant]
     Active Substance: PROCHLORPERAZINE
  2. LYNPARZA [Suspect]
     Active Substance: OLAPARIB
     Indication: NEOPLASM MALIGNANT
     Route: 048
  3. LYNPARZA [Suspect]
     Active Substance: OLAPARIB
     Indication: BREAST CANCER METASTATIC
     Route: 048
     Dates: start: 20200804
  4. LYNPARZA [Suspect]
     Active Substance: OLAPARIB
     Indication: BREAST CANCER METASTATIC
     Route: 048
     Dates: start: 20200511, end: 20200630
  5. LYNPARZA [Suspect]
     Active Substance: OLAPARIB
     Indication: NEOPLASM MALIGNANT
     Route: 048
     Dates: start: 20200804
  6. COMPZINE [Concomitant]
  7. XANAX [Concomitant]
     Active Substance: ALPRAZOLAM
  8. OXYCODONE [Concomitant]
     Active Substance: OXYCODONE
  9. LYNPARZA [Suspect]
     Active Substance: OLAPARIB
     Indication: BREAST CANCER METASTATIC
     Route: 048
  10. GABAPENTINE [Concomitant]
     Active Substance: GABAPENTIN
  11. LYNPARZA [Suspect]
     Active Substance: OLAPARIB
     Indication: NEOPLASM MALIGNANT
     Route: 048
     Dates: start: 20200511, end: 20200630
  12. LETROZOLE. [Concomitant]
     Active Substance: LETROZOLE
  13. ZOFRAN [Concomitant]
     Active Substance: ONDANSETRON HYDROCHLORIDE
  14. ANASTRAZOLE [Concomitant]
     Active Substance: ANASTROZOLE
  15. FENTANYL. [Concomitant]
     Active Substance: FENTANYL
  16. IBRANCE [Concomitant]
     Active Substance: PALBOCICLIB

REACTIONS (13)
  - Arthralgia [Not Recovered/Not Resolved]
  - Neutrophil count decreased [Unknown]
  - Platelet count decreased [Unknown]
  - Haemoglobin decreased [Unknown]
  - Pancytopenia [Unknown]
  - Anaemia [Unknown]
  - Fatigue [Unknown]
  - Inflammation [Not Recovered/Not Resolved]
  - Nausea [Unknown]
  - White blood cell count decreased [Unknown]
  - Pain [Not Recovered/Not Resolved]
  - Asthenia [Unknown]
  - Product dose omission issue [Recovered/Resolved]

NARRATIVE: CASE EVENT DATE: 20200816
